FAERS Safety Report 15938053 (Version 3)
Quarter: 2019Q2

REPORT INFORMATION
  Report Type: Spontaneous
  Country: US (occurrence: US)
  Receive Date: 20190208
  Receipt Date: 20190412
  Transmission Date: 20190711
  Serious: Yes (Other)
  Sender: FDA-Public Use
  Company Number: US-ASTRAZENECA-2019SE21076

PATIENT
  Age: 87 Year
  Sex: Female
  Weight: 81.6 kg

DRUGS (17)
  1. CLONIDINE. [Concomitant]
     Active Substance: CLONIDINE
  2. NITROGLYCERINE [Concomitant]
     Active Substance: NITROGLYCERIN
  3. LEVOTHYROXINE. [Concomitant]
     Active Substance: LEVOTHYROXINE
  4. CHLORPHENIRAMINE. [Concomitant]
     Active Substance: CHLORPHENIRAMINE
  5. NEXIUM 24HR [Suspect]
     Active Substance: ESOMEPRAZOLE MAGNESIUM
     Indication: GASTROOESOPHAGEAL REFLUX DISEASE
     Route: 048
     Dates: start: 1995, end: 2015
  6. ZOFRAN [Concomitant]
     Active Substance: ONDANSETRON HYDROCHLORIDE
  7. PRILOSEC OTC [Suspect]
     Active Substance: OMEPRAZOLE MAGNESIUM
     Indication: GASTROOESOPHAGEAL REFLUX DISEASE
     Route: 048
     Dates: start: 1995, end: 2015
  8. ASPIRINE [Concomitant]
     Active Substance: ASPIRIN
  9. FLONASE [Concomitant]
     Active Substance: FLUTICASONE PROPIONATE
  10. FLUTICASONE. [Concomitant]
     Active Substance: FLUTICASONE
  11. IRBESARTAN. [Concomitant]
     Active Substance: IRBESARTAN
  12. SPIRONOLACTONE. [Concomitant]
     Active Substance: SPIRONOLACTONE
  13. BUMETANIDE. [Concomitant]
     Active Substance: BUMETANIDE
  14. DIGOXIN. [Concomitant]
     Active Substance: DIGOXIN
  15. HYDRALAZINE [Concomitant]
     Active Substance: HYDRALAZINE HYDROCHLORIDE
  16. XANAX [Concomitant]
     Active Substance: ALPRAZOLAM
  17. LEVOTHYROXINE. [Concomitant]
     Active Substance: LEVOTHYROXINE

REACTIONS (1)
  - Chronic kidney disease [Not Recovered/Not Resolved]

NARRATIVE: CASE EVENT DATE: 2015
